FAERS Safety Report 9527682 (Version 1)
Quarter: 2013Q1

REPORT INFORMATION
  Report Type: Spontaneous
  Country: US (occurrence: None)
  Receive Date: 20130314
  Receipt Date: 20130314
  Transmission Date: 20140127
  Serious: No
  Sender: FDA-Public Use
  Company Number: 1212USA002983

PATIENT
  Age: 26 Year
  Sex: Female
  Weight: 77.1 kg

DRUGS (6)
  1. VICTRELIS [Suspect]
     Route: 048
  2. RIBAVIRIN [Suspect]
  3. PEGASYS [Suspect]
     Dosage: 180 MCG/M
  4. PROZAC (FLUOXETINE HYDROCHLORIDE) CAPSULE, 10 MG [Concomitant]
  5. BENADRYL (DIPHENHYDRAMINE HYDROCHLORIDE) CAPSULE, 25 MG [Concomitant]
  6. [THERAPY UNSPECIFIED] ([THERAPY UNSPECIFIED]} [Concomitant]

REACTIONS (5)
  - Dyspnoea [None]
  - Fatigue [None]
  - Dysgeusia [None]
  - Nausea [None]
  - Dry skin [None]
